FAERS Safety Report 5383680-6 (Version None)
Quarter: 2007Q3

REPORT INFORMATION
  Report Type: 
  Country: None (occurrence: None)
  Receive Date: 20070706
  Receipt Date: 20070625
  Transmission Date: 20080115
  Serious: Yes (Hospitalization)
  Sender: FDA-Public Use
  Company Number: 2007-03008

PATIENT
  Age: 73 Year
  Sex: Female

DRUGS (4)
  1. OXYTROL [Suspect]
     Indication: HYPERTONIC BLADDER
     Dosage: 1 PATCH, 2/WEEK, TRANSDERMAL
     Route: 062
     Dates: start: 20070419
  2. DILTIAZEM [Suspect]
     Indication: HYPERTENSION
     Dosage: ORAL
     Route: 048
  3. ETODOLAC [Suspect]
     Indication: RHEUMATOID ARTHRITIS
     Dosage: ORAL
     Route: 048
  4. COLESTIPOL (COLESTIPOL) [Concomitant]

REACTIONS (3)
  - FALL [None]
  - JOINT SWELLING [None]
  - THROMBOSIS [None]
